FAERS Safety Report 20291170 (Version 1)
Quarter: 2022Q1

REPORT INFORMATION
  Report Type: Spontaneous
  Country: US (occurrence: None)
  Receive Date: 20220103
  Receipt Date: 20220103
  Transmission Date: 20220423
  Serious: Yes (Hospitalization)
  Sender: FDA-Public Use
  Company Number: None

PATIENT
  Sex: Female

DRUGS (12)
  1. CINACALCET HYDROCHLORIDE [Suspect]
     Active Substance: CINACALCET HYDROCHLORIDE
     Indication: Hyperparathyroidism secondary
     Dosage: DAILY IN EVENING
     Route: 048
  2. ASPIRIN LOW [Concomitant]
  3. BUMETANIDE [Concomitant]
     Active Substance: BUMETANIDE
  4. CEPHALEXIN [Concomitant]
     Active Substance: CEPHALEXIN
  5. CINACALCET HYDROCHLORIDE [Concomitant]
  6. ENVARSUS XR [Concomitant]
     Active Substance: TACROLIMUS
  7. LABETALOL [Concomitant]
  8. NIFEDIPINE [Concomitant]
     Active Substance: NIFEDIPINE
  9. SODIUM BICAR [Concomitant]
  10. VALGANCICLOV [Concomitant]
  11. VITAMIN B12 [Concomitant]
     Active Substance: CYANOCOBALAMIN
  12. VITAMIN D3 [Concomitant]
     Active Substance: CHOLECALCIFEROL

REACTIONS (1)
  - Peritonitis [None]
